FAERS Safety Report 8625047-0 (Version None)
Quarter: 2012Q3

REPORT INFORMATION
  Report Type: 
  Country: None (occurrence: None)
  Receive Date: 20120827
  Receipt Date: 20120821
  Transmission Date: 20120928
  Serious: No
  Sender: FDA-Public Use
  Company Number: US-009507513-1208USA010267

PATIENT

DRUGS (1)
  1. IMPLANON [Suspect]
     Dosage: 1 DF, UNK
     Route: 058

REACTIONS (3)
  - ARTERIAL INJURY [None]
  - IMPLANT SITE HAEMATOMA [None]
  - MEDICAL DEVICE COMPLICATION [None]
